FAERS Safety Report 9254821 (Version 1)
Quarter: 2013Q1

REPORT INFORMATION
  Report Type: Spontaneous
  Country: US (occurrence: None)
  Receive Date: 20121212
  Receipt Date: 20121212
  Transmission Date: 20140127
  Serious: No
  Sender: FDA-Public Use
  Company Number: 1209USA012011

PATIENT
  Sex: Female

DRUGS (1)
  1. VICTRELIS [Suspect]
     Dosage: 800 MG, 4 OF THE 200 MG CAPSULES, PO
     Route: 048

REACTIONS (2)
  - Memory impairment [None]
  - Accidental overdose [None]
